FAERS Safety Report 7950000-X (Version None)
Quarter: 2011Q4

REPORT INFORMATION
  Report Type: 
  Country: None (occurrence: None)
  Receive Date: 20111130
  Receipt Date: 20111122
  Transmission Date: 20120403
  Serious: Yes (Hospitalization)
  Sender: FDA-Public Use
  Company Number: JP-BRISTOL-MYERS SQUIBB COMPANY-16251142

PATIENT
  Age: 49 Year
  Sex: Female

DRUGS (1)
  1. SPRYCEL [Suspect]
     Indication: CHRONIC MYELOID LEUKAEMIA
     Dosage: INITIALLY GIVEN 70MG BID,THEN REDUCED TO 100MG QD
     Route: 048
     Dates: start: 20110829

REACTIONS (3)
  - PYREXIA [None]
  - ABDOMINAL PAIN [None]
  - BLOOD FIBRINOGEN INCREASED [None]
